FAERS Safety Report 6912640-6 (Version None)
Quarter: 2010Q3

REPORT INFORMATION
  Report Type: 
  Country: None (occurrence: None)
  Receive Date: 20100806
  Receipt Date: 20080918
  Transmission Date: 20110219
  Serious: No
  Sender: FDA-Public Use
  Company Number: US-PFIZER INC-2008080580

PATIENT
  Sex: Female
  Weight: 68.181 kg

DRUGS (5)
  1. DETROL LA [Suspect]
     Indication: BLADDER SPASM
  2. PREVACID [Concomitant]
     Indication: GASTROOESOPHAGEAL REFLUX DISEASE
  3. LIPITOR [Concomitant]
  4. ZETIA [Concomitant]
  5. ESTRADIOL [Concomitant]

REACTIONS (1)
  - DRY MOUTH [None]
